FAERS Safety Report 8513038 (Version 6)
Quarter: 2013Q2

REPORT INFORMATION
  Report Type: Spontaneous
  Country: US (occurrence: US)
  Receive Date: 20120413
  Receipt Date: 20130530
  Transmission Date: 20140414
  Serious: Yes (Hospitalization)
  Sender: FDA-Public Use
  Company Number: US-ELI_LILLY_AND_COMPANY-US201111004696

PATIENT
  Age: 69 Year
  Sex: Female
  Weight: 45.45 kg

DRUGS (13)
  1. FORTEO [Suspect]
     Indication: OSTEOPOROSIS
     Dosage: 20 UG, QD
     Dates: start: 20111029
  2. FORTEO [Suspect]
     Dosage: 20 UG, QD
     Dates: end: 20120209
  3. FORTEO [Suspect]
     Dosage: 20 UG, QD
  4. FORTEO [Suspect]
     Dosage: 20 UG, QD
  5. FORTEO [Suspect]
     Dosage: 20 UG, QD
     Dates: end: 20120223
  6. BENAZEPRIL [Concomitant]
     Indication: HYPERTENSION
     Dosage: 20 MG, BID
  7. SIMVASTATIN [Concomitant]
     Dosage: 20 MG, QD
  8. VITAMIN D NOS [Concomitant]
     Dosage: 1000 IU, BID
  9. OMEGA 3 [Concomitant]
  10. TOPROL [Concomitant]
     Dosage: 25 DF, QD
  11. PREVACID [Concomitant]
     Dosage: 30 DF, QD
  12. ASPIRIN [Concomitant]
     Dosage: 81 MG, UNK
  13. XANAX [Concomitant]
     Dosage: 0.5 MG, PRN

REACTIONS (12)
  - Angiopathy [Not Recovered/Not Resolved]
  - Chest pain [Recovered/Resolved]
  - Weight decreased [Unknown]
  - Vasodilatation [Not Recovered/Not Resolved]
  - Injection site erythema [Recovered/Resolved]
  - Dehydration [Unknown]
  - Injection site rash [Unknown]
  - Flushing [Unknown]
  - Hypertension [Unknown]
  - Gastrooesophageal reflux disease [Not Recovered/Not Resolved]
  - Gastrooesophageal reflux disease [Recovered/Resolved]
  - Gastrooesophageal reflux disease [Recovered/Resolved]
